FAERS Safety Report 9990654 (Version 2)
Quarter: 2014Q1

REPORT INFORMATION
  Report Type: Spontaneous
  Country: BR (occurrence: BR)
  Receive Date: 20140310
  Receipt Date: 20140310
  Transmission Date: 20141002
  Serious: Yes (Death)
  Sender: FDA-Public Use
  Company Number: BR-TEVA-426247ISR

PATIENT
  Age: 56 Year
  Sex: Male

DRUGS (3)
  1. CARBAMAZEPINE [Suspect]
     Indication: CONVULSION
     Dosage: 400 MILLIGRAM DAILY;
     Route: 048
     Dates: start: 20130724
  2. CHEMOTHERAPEUTICS NOS [Concomitant]
     Indication: NEOPLASM MALIGNANT
     Dates: start: 20130101
  3. GABAPENTIN [Concomitant]
     Indication: CONVULSION
     Dosage: 800 MILLIGRAM DAILY;
     Route: 048
     Dates: start: 20081001

REACTIONS (5)
  - Dyspepsia [Not Recovered/Not Resolved]
  - Abdominal pain upper [Not Recovered/Not Resolved]
  - Product physical issue [Not Recovered/Not Resolved]
  - Neoplasm malignant [Fatal]
  - Respiratory arrest [Fatal]
